FAERS Safety Report 25064788 (Version 2)
Quarter: 2025Q2

REPORT INFORMATION
  Report Type: Spontaneous
  Country: US (occurrence: US)
  Receive Date: 20250311
  Receipt Date: 20250408
  Transmission Date: 20250717
  Serious: No
  Sender: BRISTOL MYERS SQUIBB
  Company Number: US-BRISTOL-MYERS SQUIBB COMPANY-2025-036453

PATIENT
  Age: 45 Year
  Sex: Male

DRUGS (1)
  1. REVLIMID [Suspect]
     Active Substance: LENALIDOMIDE
     Indication: Marginal zone lymphoma
     Dosage: FREQUENCY: QD FOR 21 DAYS
     Route: 048

REACTIONS (3)
  - Pain [Unknown]
  - Fatigue [Unknown]
  - Paraesthesia [Unknown]
